FAERS Safety Report 7639585-0 (Version None)
Quarter: 2011Q3

REPORT INFORMATION
  Report Type: 
  Country: None (occurrence: None)
  Receive Date: 20110727
  Receipt Date: 20110721
  Transmission Date: 20111222
  Serious: Yes (Other)
  Sender: FDA-Public Use
  Company Number: HR-ABBOTT-11P-216-0841232-00

PATIENT
  Sex: Female

DRUGS (2)
  1. DEPAKENE [Suspect]
     Indication: EPILEPSY
     Dosage: DAILY
     Route: 065
     Dates: start: 19990101
  2. CLONAZEPAM [Suspect]
     Indication: EPILEPSY
     Dates: start: 20090101

REACTIONS (2)
  - MOOD SWINGS [None]
  - WEIGHT INCREASED [None]
